FAERS Safety Report 21970879 (Version 1)
Quarter: 2023Q1

REPORT INFORMATION
  Report Type: Spontaneous
  Country: US (occurrence: US)
  Receive Date: 20230209
  Receipt Date: 20230209
  Transmission Date: 20230418
  Serious: No
  Sender: FDA-Public Use
  Company Number: US-AMGEN-USASP2023022486

PATIENT
  Sex: Female

DRUGS (7)
  1. OTEZLA [Suspect]
     Active Substance: APREMILAST
     Indication: Psoriasis
     Dosage: 30 MILLIGRAM, BID
     Route: 048
  2. OTEZLA [Suspect]
     Active Substance: APREMILAST
     Dosage: 30 MILLIGRAM, QD
     Route: 048
     Dates: start: 202301
  3. THERALITH [Concomitant]
     Dosage: UNK
  4. VAGIFEM [Concomitant]
     Active Substance: ESTRADIOL
     Dosage: 10 MILLIGRAM
  5. MIRENA [Concomitant]
     Active Substance: LEVONORGESTREL
  6. VITAMIN D3 [Concomitant]
     Active Substance: CHOLECALCIFEROL
     Dosage: 400 UNIT
  7. Theracran one [Concomitant]
     Dosage: UNK

REACTIONS (1)
  - Abdominal pain upper [Unknown]
